FAERS Safety Report 14577741 (Version 1)
Quarter: 2018Q1

REPORT INFORMATION
  Report Type: Spontaneous
  Country: DE (occurrence: DE)
  Receive Date: 20180227
  Receipt Date: 20180227
  Transmission Date: 20180509
  Serious: Yes (Death, Hospitalization)
  Sender: FDA-Public Use
  Company Number: DE-SA-2018SA045666

PATIENT
  Age: 64 Year
  Sex: Female

DRUGS (12)
  1. ZOLPIDEM [Suspect]
     Active Substance: ZOLPIDEM\ZOLPIDEM TARTRATE
     Route: 065
  2. AGOMELATINE [Suspect]
     Active Substance: AGOMELATINE
     Route: 065
  3. VEDOLIZUMAB [Suspect]
     Active Substance: VEDOLIZUMAB
     Indication: COLITIS ULCERATIVE
     Route: 065
     Dates: start: 20160601
  4. ASPIRIN. [Suspect]
     Active Substance: ASPIRIN
     Route: 065
  5. MESALAZINE [Suspect]
     Active Substance: MESALAMINE
     Indication: COLITIS ULCERATIVE
     Route: 065
  6. PANTOPRAZOLE [Suspect]
     Active Substance: PANTOPRAZOLE
     Route: 065
  7. MIRTAZAPINE. [Suspect]
     Active Substance: MIRTAZAPINE
     Indication: DEPRESSION
     Route: 065
  8. PREDNISONE. [Suspect]
     Active Substance: PREDNISONE
     Indication: COLITIS ULCERATIVE
     Route: 065
  9. NOVAMINSULFON [Suspect]
     Active Substance: METAMIZOLE
     Route: 065
  10. RAMIPRIL. [Suspect]
     Active Substance: RAMIPRIL
     Route: 065
  11. TILIDINE [Suspect]
     Active Substance: TILIDINE
     Route: 065
  12. BISOPROLOL FUMARATE. [Suspect]
     Active Substance: BISOPROLOL FUMARATE
     Route: 065

REACTIONS (2)
  - Drug ineffective [Fatal]
  - Colitis ulcerative [Fatal]
